FAERS Safety Report 6395551-7 (Version None)
Quarter: 2009Q4

REPORT INFORMATION
  Report Type: 
  Country: None (occurrence: None)
  Receive Date: 20091009
  Receipt Date: 20091002
  Transmission Date: 20100525
  Serious: Yes (Life-Threatening)
  Sender: FDA-Public Use
  Company Number: US-MERCK-0910USA00388

PATIENT
  Age: 62 Year
  Sex: Male
  Weight: 89 kg

DRUGS (8)
  1. VORINOSTAT [Suspect]
     Indication: OESOPHAGEAL ADENOCARCINOMA
     Route: 048
     Dates: start: 20090923, end: 20090929
  2. FOLIC ACID [Concomitant]
     Route: 065
     Dates: start: 19900826
  3. OMEPRAZOLE [Concomitant]
     Route: 065
     Dates: start: 19900826
  4. CYANOCOBALAMIN [Concomitant]
     Route: 065
     Dates: start: 19900826
  5. IRINOTECAN HYDROCHLORIDE [Suspect]
     Indication: OESOPHAGEAL ADENOCARCINOMA
     Route: 042
     Dates: start: 20090923, end: 20090923
  6. LEUCOVORIN CALCIUM [Suspect]
     Indication: OESOPHAGEAL ADENOCARCINOMA
     Route: 042
     Dates: start: 20090923, end: 20090923
  7. FLUOROURACIL [Suspect]
     Indication: OESOPHAGEAL ADENOCARCINOMA
     Route: 042
     Dates: start: 20090923, end: 20090923
  8. FLUOROURACIL [Suspect]
     Route: 042
     Dates: start: 20090923, end: 20090925

REACTIONS (1)
  - SUBCLAVIAN VEIN THROMBOSIS [None]
